FAERS Safety Report 4849559-0 (Version None)
Quarter: 2005Q4

REPORT INFORMATION
  Report Type: 
  Country: None (occurrence: None)
  Receive Date: 20051207
  Receipt Date: 20051124
  Transmission Date: 20060501
  Serious: Yes (Hospitalization)
  Sender: FDA-Public Use
  Company Number: 2005JP002296

PATIENT
  Age: 71 Year
  Sex: Male
  Weight: 48 kg

DRUGS (9)
  1. FUNGUARD(MICAFUNGIN) INJECTION [Suspect]
     Indication: CANDIDA SEPSIS
     Dosage: 150 MG,UID/QD, IV DRIP
     Route: 041
     Dates: start: 20050721, end: 20050804
  2. TARGOCID [Suspect]
     Indication: PNEUMONIA STAPHYLOCOCCAL
     Dosage: SEE IMAGE
     Route: 041
     Dates: start: 20050630, end: 20050630
  3. TARGOCID [Suspect]
     Indication: PNEUMONIA STAPHYLOCOCCAL
     Dosage: SEE IMAGE
     Route: 041
     Dates: start: 20050701, end: 20050704
  4. TARGOCID [Suspect]
     Indication: PNEUMONIA STAPHYLOCOCCAL
     Dosage: SEE IMAGE
     Route: 041
     Dates: start: 20050705, end: 20050705
  5. TARGOCID [Suspect]
     Indication: PNEUMONIA STAPHYLOCOCCAL
     Dosage: SEE IMAGE
     Route: 041
     Dates: start: 20050706, end: 20050713
  6. HABEKACIN (ARBEKACIN) INJECTION [Suspect]
     Indication: PNEUMONIA STAPHYLOCOCCAL
     Dosage: 50 MG,QOD,IV DRIP
     Route: 041
     Dates: start: 20050721, end: 20050804
  7. FAMOTIDINE [Concomitant]
  8. OMEPRAZOLE [Concomitant]
  9. FLUCONAZON (FLUCONAZOLE) [Concomitant]

REACTIONS (9)
  - BALANCE DISORDER [None]
  - CANDIDIASIS [None]
  - CATHETER SITE INFECTION [None]
  - CONDITION AGGRAVATED [None]
  - DEPRESSED LEVEL OF CONSCIOUSNESS [None]
  - DYSPHAGIA [None]
  - EATING DISORDER [None]
  - PYREXIA [None]
  - RENAL FAILURE ACUTE [None]
